FAERS Safety Report 4309687-5 (Version None)
Quarter: 2004Q1

REPORT INFORMATION
  Report Type: 
  Country: None (occurrence: None)
  Receive Date: 20040302
  Receipt Date: 20040217
  Transmission Date: 20041129
  Serious: Yes (Hospitalization, Other)
  Sender: FDA-Public Use
  Company Number: 2003114073

PATIENT
  Age: 68 Year
  Sex: Female
  Weight: 81.6475 kg

DRUGS (9)
  1. LIPITOR [Suspect]
     Indication: ILL-DEFINED DISORDER
     Dosage: 40 MG, ORAL
     Route: 048
     Dates: end: 20040120
  2. VALSARTAN (VALSARTAN) [Concomitant]
  3. WARFARIN SODIUM [Concomitant]
  4. FUROSEMIDE [Concomitant]
  5. SPIRONOLACTONE [Concomitant]
  6. ACETYLSALICYLIC ACID SRT [Concomitant]
  7. ISOSORBIDE MONONITRATE (IISOSORBIDE MONONITRATE) [Concomitant]
  8. EZETIMIBE (EZETIMIBE) [Concomitant]
  9. COMBIVENT [Concomitant]

REACTIONS (17)
  - AMNESIA [None]
  - AORTIC STENOSIS [None]
  - BUNDLE BRANCH BLOCK [None]
  - CARDIAC MURMUR [None]
  - CAROTID ARTERY STENOSIS [None]
  - CAROTID BRUIT [None]
  - CORONARY ARTERY DISEASE [None]
  - DIABETES MELLITUS [None]
  - DIZZINESS [None]
  - EJECTION FRACTION DECREASED [None]
  - HEART RATE DECREASED [None]
  - HYPERHIDROSIS [None]
  - ISCHAEMIC CARDIOMYOPATHY [None]
  - PULMONARY HYPERTENSION [None]
  - VASCULAR BYPASS GRAFT [None]
  - VENTRICULAR EXTRASYSTOLES [None]
  - WEIGHT INCREASED [None]
